FAERS Safety Report 15848947 (Version 2)
Quarter: 2019Q1

REPORT INFORMATION
  Report Type: Spontaneous
  Country: IT (occurrence: IT)
  Receive Date: 20190121
  Receipt Date: 20190125
  Transmission Date: 20190417
  Serious: Yes (Death)
  Sender: FDA-Public Use
  Company Number: PHHY2019IT010451

PATIENT

DRUGS (5)
  1. HUMAN IMMUNOGLOBULIN [Suspect]
     Active Substance: HUMAN IMMUNOGLOBULIN G
     Indication: FOETAL EXPOSURE DURING PREGNANCY
     Dosage: 1000 MG/KG, Q2W
     Route: 064
  2. ACETYLSALICYLIC ACID [Suspect]
     Active Substance: ASPIRIN
     Indication: FOETAL EXPOSURE DURING PREGNANCY
     Dosage: 100 MG, UNK
     Route: 064
  3. HEPARIN [Suspect]
     Active Substance: HEPARIN SODIUM
     Indication: FOETAL EXPOSURE DURING PREGNANCY
     Route: 064
  4. ENOXAPARIN [Suspect]
     Active Substance: ENOXAPARIN
     Indication: FOETAL EXPOSURE DURING PREGNANCY
     Dosage: 200 IU/KG, BID
     Route: 064
  5. ENOXAPARIN [Suspect]
     Active Substance: ENOXAPARIN
     Indication: ANTIPHOSPHOLIPID SYNDROME

REACTIONS (3)
  - Respiratory distress [Fatal]
  - Premature baby [Fatal]
  - Foetal exposure during pregnancy [Unknown]
